FAERS Safety Report 10006246 (Version 1)
Quarter: 2014Q1

REPORT INFORMATION
  Report Type: Spontaneous
  Country: DE (occurrence: DE)
  Receive Date: 20140313
  Receipt Date: 20140313
  Transmission Date: 20141002
  Serious: Yes (Death)
  Sender: FDA-Public Use
  Company Number: 2014SP001314

PATIENT
  Age: 50 Year
  Sex: Male

DRUGS (1)
  1. PACLITAXEL [Suspect]
     Indication: LARYNGEAL CANCER

REACTIONS (2)
  - Septic shock [Fatal]
  - Pancytopenia [Fatal]
